FAERS Safety Report 12263548 (Version 1)
Quarter: 2016Q2

REPORT INFORMATION
  Report Type: Spontaneous
  Country: US (occurrence: US)
  Receive Date: 20160413
  Receipt Date: 20160413
  Transmission Date: 20160815
  Serious: No
  Sender: FDA-Public Use
  Company Number: US-JNJFOC-20160320418

PATIENT
  Age: 86 Year
  Sex: Female
  Weight: 70.31 kg

DRUGS (2)
  1. ALL OTHER THERAPEUTIC PRODUCTS [Concomitant]
     Active Substance: UNSPECIFIED INGREDIENT
     Indication: PRODUCT USED FOR UNKNOWN INDICATION
     Route: 065
  2. TYLENOL EXTRA STRENGTH [Suspect]
     Active Substance: ACETAMINOPHEN
     Indication: ARTHRALGIA
     Dosage: 1-2 TABLETS DURING THE DAY AND THEN 2 AT NIGHT BEFORE BED
     Route: 048

REACTIONS (3)
  - Incorrect drug administration duration [Unknown]
  - Product packaging issue [Unknown]
  - Bladder disorder [Not Recovered/Not Resolved]
